FAERS Safety Report 6593699-5 (Version None)
Quarter: 2010Q1

REPORT INFORMATION
  Report Type: 
  Country: None (occurrence: None)
  Receive Date: 20100222
  Receipt Date: 20091201
  Transmission Date: 20100710
  Serious: No
  Sender: FDA-Public Use
  Company Number: US-BRISTOL-MYERS SQUIBB COMPANY-14877443

PATIENT
  Sex: Male

DRUGS (1)
  1. ORENCIA [Suspect]
     Dates: start: 20080101

REACTIONS (1)
  - HYPOACUSIS [None]
